FAERS Safety Report 25083739 (Version 1)
Quarter: 2025Q1

REPORT INFORMATION
  Report Type: Spontaneous
  Country: US (occurrence: US)
  Receive Date: 20250317
  Receipt Date: 20250317
  Transmission Date: 20250408
  Serious: No
  Sender: LUPIN
  Company Number: US-LUPIN PHARMACEUTICALS INC.-2025-00783

PATIENT
  Age: 50 Year

DRUGS (3)
  1. ALBUTEROL SULFATE [Suspect]
     Active Substance: ALBUTEROL SULFATE
     Indication: Sinus disorder
  2. ALBUTEROL SULFATE [Suspect]
     Active Substance: ALBUTEROL SULFATE
     Indication: Nasal congestion
  3. BACTRIM DS [Suspect]
     Active Substance: SULFAMETHOXAZOLE\TRIMETHOPRIM
     Indication: Periorbital cellulitis
     Route: 065

REACTIONS (7)
  - Panic attack [Unknown]
  - Off label use [Unknown]
  - Dyspnoea [Unknown]
  - Quality of life decreased [Unknown]
  - Radiculopathy [Unknown]
  - Anxiety [Unknown]
  - Feeling abnormal [Unknown]
